FAERS Safety Report 16039978 (Version 3)
Quarter: 2019Q1

REPORT INFORMATION
  Report Type: Spontaneous
  Country: CN (occurrence: CN)
  Receive Date: 20190306
  Receipt Date: 20190321
  Transmission Date: 20190418
  Serious: Yes (Death, Hospitalization, Other)
  Sender: FDA-Public Use
  Company Number: CN-PFIZER INC-2019095545

PATIENT
  Age: 61 Year
  Sex: Male
  Weight: 68 kg

DRUGS (5)
  1. ASPIRIN E.C [Concomitant]
     Active Substance: ASPIRIN
     Dosage: UNK
  2. CLOPIDOGREL BISULFATE. [Concomitant]
     Active Substance: CLOPIDOGREL BISULFATE
  3. BUTYLPHTHALIDE [Concomitant]
     Active Substance: BUTYLPHTHALIDE
  4. LIPITOR [Suspect]
     Active Substance: ATORVASTATIN CALCIUM
     Indication: CEREBROVASCULAR ACCIDENT
     Dosage: 80 MG, ONCE A DAY
     Dates: start: 20190215, end: 20190219
  5. PANTOPRAZOLE SODIUM. [Concomitant]
     Active Substance: PANTOPRAZOLE SODIUM

REACTIONS (6)
  - Hepatic failure [Fatal]
  - Myocardial infarction [Fatal]
  - Brain neoplasm malignant [Unknown]
  - Lung infection [Unknown]
  - Blood urea increased [Unknown]
  - Cerebral infarction [Unknown]

NARRATIVE: CASE EVENT DATE: 201902
